FAERS Safety Report 7351205-1 (Version None)
Quarter: 2011Q1

REPORT INFORMATION
  Report Type: 
  Country: None (occurrence: None)
  Receive Date: 20110314
  Receipt Date: 20110307
  Transmission Date: 20110831
  Serious: Yes (Hospitalization)
  Sender: FDA-Public Use
  Company Number: NL-MEDIMMUNE-MEDI-0012829

PATIENT
  Sex: Male
  Weight: 7.7 kg

DRUGS (2)
  1. SYNAGIS [Suspect]
     Route: 030
     Dates: start: 20110303
  2. SYNAGIS [Suspect]
     Route: 030
     Dates: start: 20101014, end: 20110203

REACTIONS (6)
  - ROTAVIRUS INFECTION [None]
  - INFANTILE SPITTING UP [None]
  - PYREXIA [None]
  - EYE DISORDER [None]
  - WEIGHT DECREASED [None]
  - DIARRHOEA [None]
